FAERS Safety Report 8101319-3 (Version None)
Quarter: 2012Q1

REPORT INFORMATION
  Report Type: 
  Country: None (occurrence: None)
  Receive Date: 20120131
  Receipt Date: 20120124
  Transmission Date: 20120608
  Serious: Yes (Other)
  Sender: FDA-Public Use
  Company Number: BR-JNJFOC-20120112141

PATIENT
  Sex: Male
  Weight: 83 kg

DRUGS (1)
  1. LISTERINE COOL CITRUS [Suspect]
     Indication: DENTAL DISORDER PROPHYLAXIS
     Route: 048
     Dates: start: 20120103, end: 20120120

REACTIONS (2)
  - MOUTH HAEMORRHAGE [None]
  - THERMAL BURN [None]
